FAERS Safety Report 19351694 (Version 2)
Quarter: 2022Q2

REPORT INFORMATION
  Report Type: Other
  Country: CA (occurrence: CA)
  Receive Date: 20210531
  Receipt Date: 20220531
  Transmission Date: 20220721
  Serious: Yes (Hospitalization, Other)
  Sender: FDA-Public Use
  Company Number: CA-TOLMAR, INC.-21CA026830

PATIENT
  Age: 56 Year
  Sex: Male

DRUGS (5)
  1. ELIGARD [Suspect]
     Active Substance: LEUPROLIDE ACETATE
     Indication: Prostate cancer
     Dosage: 30 MG, Q 4 MONTH
     Route: 058
     Dates: start: 20200410
  2. ELIGARD [Suspect]
     Active Substance: LEUPROLIDE ACETATE
     Indication: Prostate cancer
     Dosage: 45 MILLIGRAM, Q 6 MONTH
     Route: 058
     Dates: start: 20201119
  3. ELIGARD [Suspect]
     Active Substance: LEUPROLIDE ACETATE
     Dosage: 45 MILLIGRAM, Q 6 MONTH
     Route: 058
     Dates: start: 20210504
  4. ELIGARD [Suspect]
     Active Substance: LEUPROLIDE ACETATE
     Dosage: 45 MILLIGRAM, Q 6 MONTH
     Route: 058
     Dates: start: 20220404
  5. RADIATION THERAPY [Suspect]
     Active Substance: RADIATION THERAPY
     Indication: Product used for unknown indication
     Dosage: UNK

REACTIONS (14)
  - Spinal compression fracture [Recovering/Resolving]
  - Nerve compression [Recovering/Resolving]
  - Diplegia [Recovering/Resolving]
  - Paralysis [Recovering/Resolving]
  - Bladder dysfunction [Recovering/Resolving]
  - Peripheral swelling [Recovering/Resolving]
  - Swelling [Recovering/Resolving]
  - Metastases to spine [Recovering/Resolving]
  - White blood cell count decreased [Unknown]
  - Injection site mass [Not Recovered/Not Resolved]
  - Hot flush [Recovered/Resolved]
  - Loss of libido [Not Recovered/Not Resolved]
  - Fatigue [Unknown]
  - Injection site pain [Unknown]

NARRATIVE: CASE EVENT DATE: 20210119
